FAERS Safety Report 5303360-2 (Version None)
Quarter: 2007Q2

REPORT INFORMATION
  Report Type: 
  Country: None (occurrence: None)
  Receive Date: 20070420
  Receipt Date: 20070413
  Transmission Date: 20071010
  Serious: Yes (Hospitalization)
  Sender: FDA-Public Use
  Company Number: 2007CG00603

PATIENT
  Age: 76 Year
  Sex: Female

DRUGS (10)
  1. NEXIUM [Suspect]
     Route: 048
     Dates: start: 20060811, end: 20061207
  2. CEBUTID [Suspect]
     Route: 048
     Dates: end: 20061101
  3. KARDEGIC [Concomitant]
  4. NITROGLYCERIN [Concomitant]
  5. ADANCOR [Concomitant]
  6. LESCOL [Concomitant]
  7. IRBESARTAN [Concomitant]
  8. CELECTOL [Concomitant]
  9. PREVISCAN [Concomitant]
  10. COLLYRIUM [Concomitant]
     Indication: CATARACT OPERATION
     Route: 047

REACTIONS (1)
  - SYSTEMIC LUPUS ERYTHEMATOSUS [None]
